FAERS Safety Report 12235914 (Version 1)
Quarter: 2016Q2

REPORT INFORMATION
  Report Type: Spontaneous
  Country: AU (occurrence: AU)
  Receive Date: 20160404
  Receipt Date: 20160404
  Transmission Date: 20160815
  Serious: Yes (Life-Threatening, Other)
  Sender: FDA-Public Use
  Company Number: AU-TEVA-645760ISR

PATIENT
  Sex: Male

DRUGS (1)
  1. MODAVIGIL [Suspect]
     Active Substance: MODAFINIL
     Route: 048

REACTIONS (10)
  - Pyrexia [Unknown]
  - Drug effect increased [Unknown]
  - Malaise [Unknown]
  - Diarrhoea [Unknown]
  - Chest pain [Unknown]
  - Insomnia [Unknown]
  - Lethargy [Unknown]
  - Haematochezia [Unknown]
  - Migraine [Unknown]
  - Fatigue [Unknown]
